FAERS Safety Report 18990800 (Version 2)
Quarter: 2021Q1

REPORT INFORMATION
  Report Type: Report from Study
  Country: GT (occurrence: GT)
  Receive Date: 20210310
  Receipt Date: 20210325
  Transmission Date: 20210420
  Serious: Yes (Other)
  Sender: FDA-Public Use
  Company Number: NVSC2021GT052572

PATIENT
  Age: 62 Year
  Sex: Female
  Weight: 94.33 kg

DRUGS (6)
  1. EXFORGE HCT [Suspect]
     Active Substance: AMLODIPINE BESYLATE\HYDROCHLOROTHIAZIDE\VALSARTAN
     Indication: HYPERTENSION
     Dosage: 1 DF, QD
     Route: 065
     Dates: start: 200809, end: 2011
  2. CARVEDILOL. [Concomitant]
     Active Substance: CARVEDILOL
     Indication: HYPERTENSION
     Dosage: 1 DF, QD
     Route: 065
     Dates: start: 201911
  3. EXFORGE HCT [Suspect]
     Active Substance: AMLODIPINE BESYLATE\HYDROCHLOROTHIAZIDE\VALSARTAN
     Dosage: UNK
     Route: 065
     Dates: start: 202102
  4. LANZOPRAL [Concomitant]
     Active Substance: LANSOPRAZOLE
     Indication: GASTRIC DISORDER
     Dosage: UNK
     Route: 065
     Dates: start: 201911
  5. ATENOLOL. [Concomitant]
     Active Substance: ATENOLOL
     Indication: HYPERTENSION
     Dosage: 1 DF, QD
     Route: 065
     Dates: start: 201911
  6. SILDENAFIL. [Concomitant]
     Active Substance: SILDENAFIL
     Indication: HYPERTENSION
     Dosage: 1 DF, QD
     Route: 065
     Dates: start: 201911

REACTIONS (14)
  - Blood pressure inadequately controlled [Unknown]
  - Pain [Recovered/Resolved]
  - Headache [Recovered/Resolved]
  - Blood triglycerides increased [Unknown]
  - Blood pressure decreased [Unknown]
  - Mobility decreased [Unknown]
  - SARS-CoV-2 test positive [Recovered/Resolved]
  - Pyrexia [Recovered/Resolved]
  - Anosmia [Recovered/Resolved]
  - Cardiac disorder [Unknown]
  - Musculoskeletal discomfort [Unknown]
  - Arthralgia [Unknown]
  - Blood cholesterol increased [Unknown]
  - Femur fracture [Unknown]

NARRATIVE: CASE EVENT DATE: 200903
